FAERS Safety Report 16959418 (Version 1)
Quarter: 2019Q4

REPORT INFORMATION
  Report Type: Report from Study
  Country: CA (occurrence: CA)
  Receive Date: 20191025
  Receipt Date: 20191025
  Transmission Date: 20200122
  Serious: Yes (Death, Other)
  Sender: FDA-Public Use
  Company Number: CA-PFIZER INC-2019454574

PATIENT
  Age: 70 Year
  Sex: Male

DRUGS (7)
  1. LOMUSTINE. [Concomitant]
     Active Substance: LOMUSTINE
     Dosage: UNK
     Route: 065
  2. PHENYTOIN. [Suspect]
     Active Substance: PHENYTOIN
     Indication: SEIZURE
     Dosage: UNK UNK, 2X/DAY
     Route: 048
  3. PHENYTOIN. [Suspect]
     Active Substance: PHENYTOIN
     Dosage: 500 MG, 2X/DAY
     Route: 048
  4. AVASTIN [Suspect]
     Active Substance: BEVACIZUMAB
     Dosage: 800 MG, 1 EVERY 2 WEEKS
     Route: 042
  5. DUTASTERIDE. [Concomitant]
     Active Substance: DUTASTERIDE
     Dosage: 0.5 MG, UNK
     Route: 065
  6. AVASTIN [Suspect]
     Active Substance: BEVACIZUMAB
     Indication: BRAIN NEOPLASM MALIGNANT
     Dosage: 833 MG, 1 EVERY 2 WEEKS
     Route: 042
  7. ALFUZOSIN [Concomitant]
     Active Substance: ALFUZOSIN
     Dosage: 10 MG, UNK
     Route: 065

REACTIONS (11)
  - Death [Fatal]
  - Balance disorder [Unknown]
  - Eastern Cooperative Oncology Group performance status worsened [Unknown]
  - Seizure [Unknown]
  - Visual field defect [Unknown]
  - Fatigue [Unknown]
  - Speech disorder [Unknown]
  - Blood pressure increased [Unknown]
  - Blindness [Unknown]
  - Visual impairment [Unknown]
  - Heart rate decreased [Unknown]
